FAERS Safety Report 5187949-X (Version None)
Quarter: 2006Q4

REPORT INFORMATION
  Report Type: 
  Country: None (occurrence: None)
  Receive Date: 20061221
  Receipt Date: 20061212
  Transmission Date: 20070319
  Serious: Yes (Other)
  Sender: FDA-Public Use
  Company Number: PHEH2006US15170

PATIENT

DRUGS (1)
  1. ZELNORM [Suspect]

REACTIONS (1)
  - COLITIS ISCHAEMIC [None]
